FAERS Safety Report 6912881-8 (Version None)
Quarter: 2010Q3

REPORT INFORMATION
  Report Type: 
  Country: None (occurrence: None)
  Receive Date: 20100806
  Receipt Date: 20090315
  Transmission Date: 20110219
  Serious: No
  Sender: FDA-Public Use
  Company Number: US-PFIZER INC-2008151874

PATIENT
  Sex: Female

DRUGS (4)
  1. DILANTIN [Suspect]
  2. PHENYTOIN [Suspect]
     Dosage: UNK
  3. PHENOBARBITAL [Concomitant]
     Dosage: UNK
  4. DRUG, UNSPECIFIED [Concomitant]
     Dosage: UNK

REACTIONS (3)
  - DRUG INEFFECTIVE [None]
  - FLUSHING [None]
  - HOT FLUSH [None]
